FAERS Safety Report 10017643 (Version 1)
Quarter: 2014Q1

REPORT INFORMATION
  Report Type: Spontaneous
  Country: US (occurrence: None)
  Receive Date: 20140313
  Receipt Date: 20140313
  Transmission Date: 20141002
  Serious: Yes (Hospitalization)
  Sender: FDA-Public Use
  Company Number: None

PATIENT
  Sex: Female
  Weight: 58.97 kg

DRUGS (6)
  1. COMBIVENT RESPIMAT [Suspect]
     Indication: CHRONIC OBSTRUCTIVE PULMONARY DISEASE
     Dosage: 20 MCG/100 MCG 1 PUFF 4 X DAILY, MOUTH
     Dates: start: 201407, end: 201409
  2. SIMVASTATIN [Concomitant]
  3. SYMBICORT [Concomitant]
  4. SPIRIVA [Concomitant]
  5. ALBUTEROL SULFATE [Concomitant]
  6. NEFEDRIPINE [Concomitant]

REACTIONS (5)
  - Cough [None]
  - Respiratory rate decreased [None]
  - Gait disturbance [None]
  - Fatigue [None]
  - Rash [None]
